FAERS Safety Report 10462019 (Version 2)
Quarter: 2014Q4

REPORT INFORMATION
  Report Type: Spontaneous
  Country: US (occurrence: US)
  Receive Date: 20140918
  Receipt Date: 20141006
  Transmission Date: 20150528
  Serious: Yes (Other)
  Sender: FDA-Public Use
  Company Number: US-TEVA-510046USA

PATIENT
  Age: 24 Year
  Sex: Female
  Weight: 63.11 kg

DRUGS (3)
  1. PARAGARD T380A [Suspect]
     Active Substance: COPPER
     Indication: CONTRACEPTION
     Route: 015
     Dates: start: 20140808, end: 20140916
  2. OXYCODONE-ACETAMINOPHEN [Concomitant]
     Active Substance: ACETAMINOPHEN\OXYCODONE HYDROCHLORIDE
     Dosage: 5-325MG
  3. ZYRTEC ALLERGY [Concomitant]

REACTIONS (5)
  - Ovarian cyst [Unknown]
  - Muscle spasms [Unknown]
  - Menorrhagia [Unknown]
  - Uterine mass [Unknown]
  - Device dislocation [Recovered/Resolved]

NARRATIVE: CASE EVENT DATE: 20140909
